FAERS Safety Report 23342583 (Version 1)
Quarter: 2023Q4

REPORT INFORMATION
  Report Type: Report from Study
  Country: US (occurrence: US)
  Receive Date: 20231227
  Receipt Date: 20231227
  Transmission Date: 20240109
  Serious: Yes (Other)
  Sender: FDA-Public Use
  Company Number: US-EXELIXIS-CABO-23071969

PATIENT
  Sex: Male

DRUGS (23)
  1. CABOMETYX [Suspect]
     Active Substance: CABOZANTINIB S-MALATE
     Indication: Renal cancer
     Dosage: 40 MG, QD
     Route: 048
  2. CABOMETYX [Suspect]
     Active Substance: CABOZANTINIB S-MALATE
     Indication: Lung disorder
  3. AMLODIPINE BESYLATE [Concomitant]
     Active Substance: AMLODIPINE BESYLATE
  4. HYDRALAZINE HCL [Concomitant]
     Active Substance: HYDRALAZINE HYDROCHLORIDE
  5. CALCIUM [Concomitant]
     Active Substance: CALCIUM
  6. DORZOLAMIDE [Concomitant]
     Active Substance: DORZOLAMIDE
  7. FLAXSEED [Concomitant]
     Active Substance: FLAX SEED
  8. GARLIC OIL [Concomitant]
     Active Substance: GARLIC OIL
  9. LATANOPROST [Concomitant]
     Active Substance: LATANOPROST
  10. NIACIN [Concomitant]
     Active Substance: NIACIN
  11. TRESIBA [Concomitant]
     Active Substance: INSULIN DEGLUDEC
  12. VIIBRYD [Concomitant]
     Active Substance: VILAZODONE HYDROCHLORIDE
  13. VITAMIN D [Concomitant]
     Active Substance: VITAMIN D NOS
  14. VITAMINS [Concomitant]
     Active Substance: VITAMINS
  15. VIBERZI [Concomitant]
     Active Substance: ELUXADOLINE
  16. FINASTERIDE [Concomitant]
     Active Substance: FINASTERIDE
  17. LEVOTHYROXINE [Concomitant]
     Active Substance: LEVOTHYROXINE
  18. LOVASTATIN [Concomitant]
     Active Substance: LOVASTATIN
  19. METOPROLOL [Concomitant]
     Active Substance: METOPROLOL
  20. PANTOPRAZOLE [Concomitant]
     Active Substance: PANTOPRAZOLE
  21. TAMSULOSIN [Concomitant]
     Active Substance: TAMSULOSIN
  22. COENZYME Q10 [Concomitant]
     Active Substance: DIETARY SUPPLEMENT\UBIDECARENONE
  23. HYDROCHLOROTHIAZIDE\LOSARTAN [Concomitant]
     Active Substance: HYDROCHLOROTHIAZIDE\LOSARTAN

REACTIONS (11)
  - Diabetes mellitus [Not Recovered/Not Resolved]
  - Diarrhoea [Not Recovered/Not Resolved]
  - Fatigue [Not Recovered/Not Resolved]
  - Decreased appetite [Not Recovered/Not Resolved]
  - Dyspnoea [Not Recovered/Not Resolved]
  - Increased tendency to bruise [Not Recovered/Not Resolved]
  - Wound [Not Recovered/Not Resolved]
  - Lactose intolerance [Not Recovered/Not Resolved]
  - Peroneal nerve palsy [Not Recovered/Not Resolved]
  - Skin ulcer [Recovering/Resolving]
  - Impaired healing [Not Recovered/Not Resolved]
